FAERS Safety Report 20094194 (Version 2)
Quarter: 2022Q1

REPORT INFORMATION
  Report Type: Spontaneous
  Country: US (occurrence: US)
  Receive Date: 20211122
  Receipt Date: 20220106
  Transmission Date: 20220423
  Serious: Yes (Other)
  Sender: FDA-Public Use
  Company Number: US-ELI_LILLY_AND_COMPANY-US202111008912

PATIENT
  Sex: Male
  Weight: 136.05 kg

DRUGS (1)
  1. TRULICITY [Suspect]
     Active Substance: DULAGLUTIDE
     Indication: Diabetes mellitus inadequate control
     Dosage: 4.5 MG, WEEKLY (1/W)
     Route: 058
     Dates: start: 202108, end: 20210830

REACTIONS (1)
  - Pancreatitis [Recovered/Resolved]
